FAERS Safety Report 20909594 (Version 1)
Quarter: 2022Q2

REPORT INFORMATION
  Report Type: Spontaneous
  Country: CN (occurrence: None)
  Receive Date: 20220603
  Receipt Date: 20220603
  Transmission Date: 20220721
  Serious: Yes (Disabling)
  Sender: FDA-Public Use
  Company Number: CN-ROCHE-3104563

PATIENT
  Age: 57 Year
  Sex: Female
  Weight: 69 kg

DRUGS (9)
  1. OXALIPLATIN [Suspect]
     Active Substance: OXALIPLATIN
     Indication: Colon cancer
     Route: 041
     Dates: start: 20211018, end: 20211018
  2. FLUOROURACIL [Suspect]
     Active Substance: FLUOROURACIL
     Indication: Colon cancer
     Dosage: LASTING FOR 48 HOURS
     Route: 065
     Dates: start: 20211018, end: 20211020
  3. IRINOTECAN [Suspect]
     Active Substance: IRINOTECAN
     Indication: Colon cancer
     Route: 041
     Dates: start: 20211018, end: 20211018
  4. AVASTIN [Suspect]
     Active Substance: BEVACIZUMAB
     Indication: Colon cancer
     Route: 041
     Dates: start: 20211018, end: 20211018
  5. SODIUM CHLORIDE [Concomitant]
     Active Substance: SODIUM CHLORIDE
     Dosage: LASTING FOR 48 HOURS
     Route: 065
     Dates: start: 20211018, end: 20211020
  6. SODIUM CHLORIDE [Concomitant]
     Active Substance: SODIUM CHLORIDE
     Dosage: LASTING FOR 48 HOURS
     Route: 041
     Dates: start: 20211018, end: 20211020
  7. SODIUM CHLORIDE [Concomitant]
     Active Substance: SODIUM CHLORIDE
     Dosage: LASTING FOR 48 HOURS
     Route: 041
     Dates: start: 20211018, end: 20211020
  8. LEUCOVORIN CALCIUM [Concomitant]
     Active Substance: LEUCOVORIN CALCIUM
     Indication: Colon cancer
     Route: 041
     Dates: start: 20211018, end: 20211018
  9. DEXTROSE [Concomitant]
     Active Substance: DEXTROSE
     Route: 041
     Dates: start: 20211018, end: 20211018

REACTIONS (2)
  - White blood cell count decreased [Recovered/Resolved]
  - Granulocyte count decreased [Recovered/Resolved]

NARRATIVE: CASE EVENT DATE: 20211104
